FAERS Safety Report 9086183 (Version 1)
Quarter: 2013Q1

REPORT INFORMATION
  Report Type: Report from Study
  Country: US (occurrence: US)
  Receive Date: 20130131
  Receipt Date: 20130131
  Transmission Date: 20140127
  Serious: No
  Sender: FDA-Public Use
  Company Number: US-ABBOTT-12P-163-1004182-00

PATIENT
  Age: 38 Year
  Sex: Female

DRUGS (16)
  1. HUMIRA [Suspect]
     Indication: CROHN^S DISEASE
     Route: 058
     Dates: start: 20121004, end: 20121004
  2. HUMIRA [Suspect]
     Dates: start: 20121018
  3. DILANTIN [Concomitant]
     Indication: GRAND MAL CONVULSION
     Dosage: 3 TABS IN THE MORNING, 3 TABS AT NIGHT
  4. SINGULAIR [Concomitant]
     Indication: ASTHMA
     Dosage: AT BEDTIME
  5. SINGULAIR [Concomitant]
     Indication: HYPERSENSITIVITY
  6. PRILOSEC [Concomitant]
     Indication: GASTROOESOPHAGEAL REFLUX DISEASE
  7. SEROQUEL [Concomitant]
     Indication: INSOMNIA
     Dosage: AT BEDTIME
  8. HYDROCODONE [Concomitant]
     Indication: ARTHRALGIA
     Dosage: 7.5/325MG 1 TAB EVERY 4-6 HOURS AS NEEDED
  9. B-12 [Concomitant]
     Indication: CROHN^S DISEASE
     Dosage: 1CC EVERY 3 WEEKS
     Route: 050
  10. LASIX [Concomitant]
     Indication: OEDEMA PERIPHERAL
     Dosage: 20MG DAILY
  11. PROAIR [Concomitant]
     Indication: ASTHMA
     Dosage: INHALER
  12. REMERON [Concomitant]
     Indication: INSOMNIA
     Dosage: AT BEDTIME
  13. PHENERGAN [Concomitant]
     Indication: NAUSEA
  14. METHOCARBAMOL [Concomitant]
     Indication: MYALGIA
     Dosage: 1 TABLET 3 TIMES A DAY AS NEEDED
  15. PAXIL [Concomitant]
     Indication: DEPRESSION
     Dosage: 20MG DAILY
  16. DIAZEPAM [Concomitant]
     Indication: ANXIETY
     Dosage: 5MG 3 TIMES A DAY AS NEEDED

REACTIONS (5)
  - Device malfunction [Not Recovered/Not Resolved]
  - Injection site bruising [Recovering/Resolving]
  - Injection site urticaria [Recovering/Resolving]
  - Injection site bruising [Recovering/Resolving]
  - Injection site urticaria [Recovering/Resolving]
